FAERS Safety Report 4469830-4 (Version None)
Quarter: 2004Q4

REPORT INFORMATION
  Report Type: 
  Country: None (occurrence: None)
  Receive Date: 20041008
  Receipt Date: 20041006
  Transmission Date: 20050328
  Serious: Yes (Other)
  Sender: FDA-Public Use
  Company Number: DE-GLAXOSMITHKLINE-D0044880A

PATIENT
  Sex: Male

DRUGS (1)
  1. AUGMENTIN '250' [Suspect]
     Indication: URINARY TRACT INFECTION
     Route: 065
     Dates: start: 20040801

REACTIONS (4)
  - BLOOD BILIRUBIN INCREASED [None]
  - GAMMA-GLUTAMYLTRANSFERASE INCREASED [None]
  - PRURITUS [None]
  - TRANSAMINASES INCREASED [None]
